FAERS Safety Report 6253499-2 (Version None)
Quarter: 2009Q3

REPORT INFORMATION
  Report Type: 
  Country: None (occurrence: None)
  Receive Date: 20090701
  Receipt Date: 20090629
  Transmission Date: 20100115
  Serious: Yes (Other)
  Sender: FDA-Public Use
  Company Number: TR-ROXANE LABORATORIES, INC.-2009-RO-00626RO

PATIENT
  Age: 10 Year
  Sex: Female
  Weight: 30 kg

DRUGS (8)
  1. METHOTREXATE [Suspect]
     Indication: B PRECURSOR TYPE ACUTE LEUKAEMIA
     Route: 037
  2. METHOTREXATE [Suspect]
     Route: 042
  3. METHOTREXATE [Suspect]
     Route: 037
  4. PREDNISOLONE [Suspect]
     Indication: B PRECURSOR TYPE ACUTE LEUKAEMIA
     Route: 037
  5. CYTARABINE [Suspect]
     Indication: B PRECURSOR TYPE ACUTE LEUKAEMIA
     Route: 037
  6. ISOTONIC SALINE [Concomitant]
     Indication: ACCIDENTAL OVERDOSE
  7. CALCIUM FOLINIC ACID [Concomitant]
     Indication: ACCIDENTAL OVERDOSE
     Route: 042
  8. DEXAMETHASONE [Concomitant]
     Indication: ACCIDENTAL OVERDOSE
     Route: 042

REACTIONS (2)
  - ACCIDENTAL OVERDOSE [None]
  - INCORRECT DOSE ADMINISTERED [None]
